FAERS Safety Report 19603925 (Version 1)
Quarter: 2021Q3

REPORT INFORMATION
  Report Type: Other
  Country: TR (occurrence: TR)
  Receive Date: 20210724
  Receipt Date: 20210724
  Transmission Date: 20211014
  Serious: Yes (Hospitalization)
  Sender: FDA-Public Use
  Company Number: TR-B.BRAUN MEDICAL INC.-2114236

PATIENT
  Age: 16 Year
  Sex: Male

DRUGS (7)
  1. 20% MANNITOL INJECTION USP 0264?7578?10 0264?7578?20 [Suspect]
     Active Substance: MANNITOL
     Indication: INTRAOCULAR PRESSURE INCREASED
     Route: 042
  2. DEXAMETHASONE. [Concomitant]
     Active Substance: DEXAMETHASONE
     Route: 047
  3. FVIII CONCENTRATE [Concomitant]
     Active Substance: ANTIHEMOPHILIC FACTOR HUMAN
  4. ACETAZOLAMIDE. [Suspect]
     Active Substance: ACETAZOLAMIDE
     Route: 048
  5. ALPHAGAN P [Suspect]
     Active Substance: BRIMONIDINE TARTRATE
     Route: 047
  6. COSOPT [Suspect]
     Active Substance: DORZOLAMIDE HYDROCHLORIDE\TIMOLOL MALEATE
     Route: 047
  7. CYCLOPENTOLATE. [Concomitant]
     Active Substance: CYCLOPENTOLATE
     Route: 047

REACTIONS (1)
  - Drug ineffective [None]
